FAERS Safety Report 13115388 (Version 1)
Quarter: 2017Q1

REPORT INFORMATION
  Report Type: Spontaneous
  Country: US (occurrence: US)
  Receive Date: 20170113
  Receipt Date: 20170113
  Transmission Date: 20170428
  Serious: Yes (Hospitalization, Other)
  Sender: FDA-Public Use
  Company Number: US-BRISTOL-MYERS SQUIBB COMPANY-BMS-2017-000981

PATIENT
  Sex: Female

DRUGS (1)
  1. SPRYCEL [Suspect]
     Active Substance: DASATINIB
     Indication: CHRONIC MYELOID LEUKAEMIA
     Dosage: 50 MG, QD
     Route: 048

REACTIONS (9)
  - Arthralgia [Unknown]
  - Syncope [Unknown]
  - Dyspnoea [Unknown]
  - Loss of consciousness [Unknown]
  - Fatigue [Unknown]
  - Intra-abdominal haemorrhage [Unknown]
  - Blood pressure increased [Unknown]
  - Skin discolouration [Unknown]
  - Abdominal distension [Unknown]

NARRATIVE: CASE EVENT DATE: 2011
